FAERS Safety Report 9984498 (Version 1)
Quarter: 2014Q1

REPORT INFORMATION
  Report Type: Report from Study
  Country: US (occurrence: US)
  Receive Date: 20140307
  Receipt Date: 20140307
  Transmission Date: 20141002
  Serious: No
  Sender: FDA-Public Use
  Company Number: US-ABBVIE-13P-163-1182269-00

PATIENT
  Sex: Female

DRUGS (8)
  1. HUMIRA [Suspect]
     Indication: CROHN^S DISEASE
     Route: 050
     Dates: start: 20131119, end: 20131119
  2. HUMIRA [Suspect]
     Route: 050
     Dates: start: 20131203, end: 20131203
  3. HUMIRA [Suspect]
     Route: 050
     Dates: start: 20131217
  4. SYNTHROID [Concomitant]
     Indication: PRODUCT USED FOR UNKNOWN INDICATION
  5. MULTIVITAMIN [Concomitant]
     Indication: PRODUCT USED FOR UNKNOWN INDICATION
  6. VITAMIN C [Concomitant]
     Indication: PRODUCT USED FOR UNKNOWN INDICATION
  7. VITAMIN D [Concomitant]
     Indication: PRODUCT USED FOR UNKNOWN INDICATION
  8. CLARITIN [Concomitant]
     Indication: MULTIPLE ALLERGIES

REACTIONS (1)
  - Alopecia [Not Recovered/Not Resolved]
